FAERS Safety Report 16494932 (Version 3)
Quarter: 2019Q3

REPORT INFORMATION
  Report Type: Report from Study
  Country: US (occurrence: US)
  Receive Date: 20190628
  Receipt Date: 20190718
  Transmission Date: 20191004
  Serious: Yes (Hospitalization, Other)
  Sender: FDA-Public Use
  Company Number: US-AMGEN-USACT2019101723

PATIENT
  Age: 46 Year
  Sex: Female

DRUGS (30)
  1. SODIUM BICARBONATE. [Concomitant]
     Active Substance: SODIUM BICARBONATE
     Dosage: UNK
     Dates: start: 20160906
  2. GUANFACINE. [Concomitant]
     Active Substance: GUANFACINE
     Dosage: UNK
     Dates: start: 20160906
  3. ASPIRIN COX [ACETYLSALICYLIC ACID] [Concomitant]
     Dosage: UNK
     Dates: start: 20141207
  4. DARBEPOETIN ALFA [Suspect]
     Active Substance: DARBEPOETIN ALFA
     Dosage: 30 MICROGRAM, Q2WK
     Route: 058
     Dates: start: 20170307, end: 20170307
  5. DOXAZOSIN [Concomitant]
     Active Substance: DOXAZOSIN MESYLATE
     Dosage: UNK
     Dates: start: 20160426
  6. ZEMPLAR [Concomitant]
     Active Substance: PARICALCITOL
     Indication: HYPERCALCAEMIA
     Dosage: UNK
     Route: 048
     Dates: start: 20180318
  7. CARVEDILOL. [Concomitant]
     Active Substance: CARVEDILOL
     Dosage: UNK
     Dates: start: 20160426
  8. SYNTHROID [Concomitant]
     Active Substance: LEVOTHYROXINE SODIUM
     Dosage: UNK
  9. CITALOPRAM [Concomitant]
     Active Substance: CITALOPRAM HYDROBROMIDE
     Dosage: UNK
     Dates: start: 20160427
  10. ATORVASTATIN [Concomitant]
     Active Substance: ATORVASTATIN
     Dosage: UNK
     Dates: start: 20160426
  11. CALCIUM CARBONATE. [Concomitant]
     Active Substance: CALCIUM CARBONATE
     Dosage: UNK
     Dates: start: 2015
  12. VITAMIN B12 [Concomitant]
     Active Substance: CYANOCOBALAMIN
     Dosage: UNK
     Dates: start: 2015
  13. MEGACE [Concomitant]
     Active Substance: MEGESTROL ACETATE
     Dosage: UNK
     Dates: start: 20170409
  14. DARBEPOETIN ALFA [Suspect]
     Active Substance: DARBEPOETIN ALFA
     Dosage: 60 MICROGRAM, Q2WK
     Route: 058
     Dates: start: 20171205, end: 20180221
  15. DOCUSATE [Concomitant]
     Active Substance: DOCUSATE
     Dosage: UNK
     Dates: start: 20160426
  16. HYDRALAZINE [Concomitant]
     Active Substance: HYDRALAZINE HYDROCHLORIDE
     Dosage: UNK
     Dates: start: 20160426
  17. DOXYCYCLINE. [Concomitant]
     Active Substance: DOXYCYCLINE
     Dosage: UNK
     Dates: start: 20180218
  18. DARBEPOETIN ALFA [Suspect]
     Active Substance: DARBEPOETIN ALFA
     Dosage: 200 MICROGRAM, QWK
     Route: 058
     Dates: start: 20180222, end: 20180307
  19. DARBEPOETIN ALFA [Suspect]
     Active Substance: DARBEPOETIN ALFA
     Dosage: 60 MICROGRAM, Q2WK
     Route: 058
     Dates: start: 20180605, end: 20180613
  20. DARBEPOETIN ALFA [Suspect]
     Active Substance: DARBEPOETIN ALFA
     Dosage: 60 MICROGRAM, Q2WK
     Route: 058
     Dates: start: 20180810, end: 20180820
  21. PHENYTOIN. [Concomitant]
     Active Substance: PHENYTOIN
     Dosage: UNK
     Dates: start: 20161004
  22. SYNTHROID [Concomitant]
     Active Substance: LEVOTHYROXINE SODIUM
     Dosage: 50 MICROGRAM
  23. DARBEPOETIN ALFA [Suspect]
     Active Substance: DARBEPOETIN ALFA
     Indication: ANAEMIA
     Dosage: 10 MICROGRAM, Q2WK
     Route: 058
     Dates: start: 20161201, end: 20161214
  24. DARBEPOETIN ALFA [Suspect]
     Active Substance: DARBEPOETIN ALFA
     Dosage: 10 MICROGRAM, Q2WK
     Route: 058
     Dates: start: 20161227, end: 20170125
  25. DARBEPOETIN ALFA [Suspect]
     Active Substance: DARBEPOETIN ALFA
     Dosage: 100 MICROGRAM, Q2WK
     Route: 058
     Dates: start: 20180501, end: 20180521
  26. AMLODIPINE [Concomitant]
     Active Substance: AMLODIPINE BESYLATE
     Dosage: UNK
     Dates: start: 20160427, end: 20180712
  27. LEVETIRACETAM. [Concomitant]
     Active Substance: LEVETIRACETAM
     Dosage: UNK
     Dates: start: 20160519
  28. FERROUS SULFATE. [Concomitant]
     Active Substance: FERROUS SULFATE
     Dosage: UNK
     Dates: start: 20160519
  29. FOLIC ACID. [Concomitant]
     Active Substance: FOLIC ACID
     Dosage: UNK
     Dates: start: 2015
  30. CALCITRIOL. [Concomitant]
     Active Substance: CALCITRIOL
     Dosage: UNK
     Dates: start: 20160427

REACTIONS (3)
  - Device related thrombosis [Recovered/Resolved]
  - Vascular access malfunction [Recovered/Resolved]
  - Device related infection [Recovered/Resolved]

NARRATIVE: CASE EVENT DATE: 20180616
